FAERS Safety Report 9440679 (Version 1)
Quarter: 2013Q3

REPORT INFORMATION
  Report Type: Spontaneous
  Country: US (occurrence: US)
  Receive Date: 20130805
  Receipt Date: 20130805
  Transmission Date: 20140515
  Serious: No
  Sender: FDA-Public Use
  Company Number: US-ROXANE LABORATORIES, INC.-2013-RO-01308RO

PATIENT
  Sex: Male

DRUGS (1)
  1. PREDNISONE [Suspect]
     Indication: SINUS OPERATION
     Dosage: 20 MG
     Route: 048

REACTIONS (4)
  - Insomnia [Recovered/Resolved]
  - Dyspepsia [Recovered/Resolved]
  - Irritability [Recovered/Resolved]
  - Rash pustular [Recovered/Resolved]
